FAERS Safety Report 13472430 (Version 1)
Quarter: 2017Q2

REPORT INFORMATION
  Report Type: Spontaneous
  Country: US (occurrence: US)
  Receive Date: 20170423
  Receipt Date: 20170423
  Transmission Date: 20170830
  Serious: Yes (Disabling)
  Sender: FDA-Public Use
  Company Number: None

PATIENT
  Age: 36 Year
  Sex: Female
  Weight: 45 kg

DRUGS (1)
  1. GEODON [Suspect]
     Active Substance: ZIPRASIDONE HYDROCHLORIDE\ZIPRASIDONE MESYLATE
     Indication: THERAPY CHANGE
     Dosage: EVERY 12 HOURS ORAL
     Route: 048
     Dates: start: 20170216, end: 20170303

REACTIONS (1)
  - Blindness [None]

NARRATIVE: CASE EVENT DATE: 20170220
